FAERS Safety Report 9902742 (Version 2)
Quarter: 2014Q1

REPORT INFORMATION
  Report Type: Report from Study
  Country: CA (occurrence: CA)
  Receive Date: 20140217
  Receipt Date: 20140226
  Transmission Date: 20141002
  Serious: Yes (Hospitalization)
  Sender: FDA-Public Use
  Company Number: CA-JNJFOC-20140207741

PATIENT
  Sex: Male
  Weight: 95 kg

DRUGS (2)
  1. REMICADE [Suspect]
     Indication: CROHN^S DISEASE
     Route: 042
     Dates: start: 20140103, end: 201401
  2. REMICADE [Suspect]
     Indication: CROHN^S DISEASE
     Dosage: PATIENT HAD WEEK 0 AND 2 INFUSIONS SO FAR
     Route: 042
     Dates: start: 20131220

REACTIONS (2)
  - Small intestinal obstruction [Unknown]
  - Weight decreased [Unknown]
